FAERS Safety Report 19836703 (Version 1)
Quarter: 2021Q3

REPORT INFORMATION
  Report Type: Spontaneous
  Country: ES (occurrence: ES)
  Receive Date: 20210914
  Receipt Date: 20210914
  Transmission Date: 20211014
  Serious: Yes (Death, Other)
  Sender: FDA-Public Use
  Company Number: ES-OTSUKA-2021_031787

PATIENT

DRUGS (9)
  1. BUSULFAN. [Suspect]
     Active Substance: BUSULFAN
     Indication: BONE MARROW CONDITIONING REGIMEN
     Dosage: 3.2 MG/KG, BID (2/DAY)
     Route: 065
  2. THERAPEUTIC PLASMA EXCHANGE (UNSPECIFIED) [Suspect]
     Active Substance: UNSPECIFIED INGREDIENT
     Indication: IMMUNE TOLERANCE INDUCTION
     Dosage: TPE X2 SESSIONS
     Route: 065
  3. DEXAMETHASONE. [Suspect]
     Active Substance: DEXAMETHASONE
     Indication: IMMUNE TOLERANCE INDUCTION
     Dosage: DEXA 40 X 4 DAYS
     Route: 065
  4. TACROLIMUS. [Suspect]
     Active Substance: TACROLIMUS
     Indication: IMMUNE TOLERANCE INDUCTION
     Dosage: 0.06 MG/KG, DAILY
     Route: 065
  5. CYCLOPHOSPHAMIDE. [Concomitant]
     Active Substance: CYCLOPHOSPHAMIDE
     Indication: PROPHYLAXIS AGAINST GRAFT VERSUS HOST DISEASE
     Dosage: 50 MG/KG/DAY ON DAY 3 AND 4
     Route: 065
  6. MYCOPHENOLATE MOFETIL [MYCOPHENOLATE MOFETIL HYDROCHLORIDE] [Suspect]
     Active Substance: MYCOPHENOLATE MOFETIL HYDROCHLORIDE
     Indication: IMMUNE TOLERANCE INDUCTION
     Dosage: 5?10 MG/KG/BID X 2 WEEKS
     Route: 065
  7. IMMUNE GLOBULIN (IMMUNOGLOBULINS NOS) [Suspect]
     Active Substance: IMMUNE GLOBULIN NOS
     Indication: IMMUNE TOLERANCE INDUCTION
     Dosage: 0.4MG/KG/DAY X 4 DOSES;
     Route: 042
  8. MYCOPHENOLATE MOFETIL [MYCOPHENOLATE MOFETIL HYDROCHLORIDE] [Suspect]
     Active Substance: MYCOPHENOLATE MOFETIL HYDROCHLORIDE
     Indication: PROPHYLAXIS AGAINST GRAFT VERSUS HOST DISEASE
     Dosage: 10 MG/KG/DAY
     Route: 065
  9. RITUXIMAB. [Suspect]
     Active Substance: RITUXIMAB
     Indication: IMMUNE TOLERANCE INDUCTION
     Dosage: 375 MG/M2
     Route: 065

REACTIONS (3)
  - Bacteraemia [Fatal]
  - Off label use [Fatal]
  - Drug effective for unapproved indication [Fatal]
